FAERS Safety Report 17995431 (Version 1)
Quarter: 2020Q3

REPORT INFORMATION
  Report Type: Report from Study
  Country: US (occurrence: US)
  Receive Date: 20200708
  Receipt Date: 20200708
  Transmission Date: 20201103
  Serious: Yes (Other)
  Sender: FDA-Public Use
  Company Number: US-PFIZER INC-2020257358

PATIENT

DRUGS (4)
  1. METHOTREXATE SODIUM. [Suspect]
     Active Substance: METHOTREXATE SODIUM
     Indication: OSTEOSARCOMA
     Dosage: 12.5 G/M^2 OVER 6H, INFUSION
  2. DEXTROSE. [Concomitant]
     Active Substance: DEXTROSE
     Dosage: UNK (5% INFUSION)
  3. SODIUM CHLORIDE. [Concomitant]
     Active Substance: SODIUM CHLORIDE
     Dosage: UNK (0.2% INFUSION, 3 1/M^2/24 H WAS INITIATED FOR 6?12 H)
  4. L?LEUCOVORIN [Concomitant]
     Active Substance: LEUCOVORIN
     Dosage: UNK
     Route: 042

REACTIONS (1)
  - Neuropathy peripheral [Recovered/Resolved]
